FAERS Safety Report 5181143-4 (Version None)
Quarter: 2006Q4

REPORT INFORMATION
  Report Type: 
  Country: None (occurrence: None)
  Receive Date: 20061218
  Receipt Date: 20061218
  Transmission Date: 20070319
  Serious: Yes (Other)
  Sender: FDA-Public Use
  Company Number: None

PATIENT
  Age: 47 Year
  Sex: Male
  Weight: 121.1104 kg

DRUGS (3)
  1. GEMFIBROZIL [Suspect]
     Indication: BLOOD CHOLESTEROL INCREASED
     Dosage: 600 MG   B.I.D.   PO
     Route: 048
     Dates: start: 20040420, end: 20041227
  2. LIPITOR [Suspect]
     Indication: BLOOD CHOLESTEROL INCREASED
     Dosage: 20 MG   ONCE DAILY  PO
     Route: 048
     Dates: start: 20041228, end: 20050418
  3. LIPITOR [Suspect]
     Indication: BLOOD TRIGLYCERIDES INCREASED
     Dosage: 20 MG   ONCE DAILY  PO
     Route: 048
     Dates: start: 20041228, end: 20050418

REACTIONS (5)
  - HYPOGLYCAEMIA [None]
  - MYOSITIS [None]
  - PHARMACEUTICAL PRODUCT COMPLAINT [None]
  - RECTAL HAEMORRHAGE [None]
  - RHABDOMYOLYSIS [None]
